FAERS Safety Report 10581574 (Version 1)
Quarter: 2014Q4

REPORT INFORMATION
  Report Type: Spontaneous
  Country: US (occurrence: US)
  Receive Date: 20141113
  Receipt Date: 20141113
  Transmission Date: 20150529
  Serious: Yes (Hospitalization, Other)
  Sender: FDA-Public Use
  Company Number: US-SA-2014SA154276

PATIENT
  Age: 88 Year
  Sex: Female

DRUGS (4)
  1. PREDNISONE. [Concomitant]
     Active Substance: PREDNISONE
  2. ANTIBIOTICS [Concomitant]
     Active Substance: UNSPECIFIED INGREDIENT
  3. LANTUS SOLOSTAR [Suspect]
     Active Substance: INSULIN GLARGINE
     Indication: TYPE 2 DIABETES MELLITUS
     Dosage: 15-22 UNITS
     Route: 065
     Dates: start: 2008
  4. SOLOSTAR [Concomitant]
     Active Substance: DEVICE
     Dates: start: 2008

REACTIONS (2)
  - Bronchitis [Recovered/Resolved]
  - Leukaemia [Recovered/Resolved]
